FAERS Safety Report 5327076-1 (Version None)
Quarter: 2007Q2

REPORT INFORMATION
  Report Type: 
  Country: None (occurrence: None)
  Receive Date: 20070517
  Receipt Date: 20070511
  Transmission Date: 20071010
  Serious: Yes (Other)
  Sender: FDA-Public Use
  Company Number: PHBS2007BE07848

PATIENT
  Sex: Male

DRUGS (3)
  1. ZOMETA [Suspect]
     Indication: MULTIPLE MYELOMA
     Dosage: 4 MG ONCE MONTHLY
     Route: 051
     Dates: start: 20030101
  2. THALIDOMIDE [Concomitant]
  3. INSULIN [Concomitant]

REACTIONS (2)
  - OSTEONECROSIS [None]
  - PAIN IN JAW [None]
